FAERS Safety Report 9031079 (Version 2)
Quarter: 2013Q4

REPORT INFORMATION
  Report Type: Spontaneous
  Country: GB (occurrence: GB)
  Receive Date: 20130123
  Receipt Date: 20131022
  Transmission Date: 20140711
  Serious: Yes (Other)
  Sender: FDA-Public Use
  Company Number: GB-TEVA-381143ISR

PATIENT
  Age: 30 Year
  Sex: Female
  Weight: 68.5 kg

DRUGS (5)
  1. VENLAFAXINE [Suspect]
     Indication: ANXIETY
     Route: 048
  2. PROPRANOLOL [Suspect]
     Indication: ANXIETY
     Route: 048
  3. AMITRIPTYLINE [Suspect]
     Indication: ANXIETY
     Route: 048
  4. ZOPICLONE [Suspect]
     Indication: ANXIETY
     Route: 048
  5. DULOXETINE [Concomitant]
     Dosage: DULOXETINE STOPPED DURING PREGNANCY

REACTIONS (3)
  - Foetal death [Unknown]
  - Premature separation of placenta [Unknown]
  - Abdominal pain [Unknown]
